FAERS Safety Report 10008653 (Version 1)
Quarter: 2014Q1

REPORT INFORMATION
  Report Type: Spontaneous
  Country: US (occurrence: US)
  Receive Date: 20140312
  Receipt Date: 20140312
  Transmission Date: 20141002
  Serious: No
  Sender: FDA-Public Use
  Company Number: US-INCYTE CORPORATION-2012IN000148

PATIENT
  Age: 80 Year
  Sex: Male

DRUGS (4)
  1. JAKAFI [Suspect]
     Indication: MYELOFIBROSIS
     Dosage: 10 MG, BID
     Route: 048
     Dates: start: 20120103
  2. OMEPRAZOLE [Concomitant]
     Dosage: 20 MG, QD
     Route: 048
  3. ASA [Concomitant]
     Dosage: 81 MG, ON M, W, F
     Route: 048
  4. OMEGA 3 FISH OIL [Concomitant]
     Dosage: UNK, QD
     Route: 048

REACTIONS (1)
  - Diarrhoea [Recovered/Resolved]
